FAERS Safety Report 23866711 (Version 2)
Quarter: 2024Q2

REPORT INFORMATION
  Report Type: Spontaneous
  Country: FR (occurrence: FR)
  Receive Date: 20240517
  Receipt Date: 20240522
  Transmission Date: 20240716
  Serious: Yes (Hospitalization, Other)
  Sender: FDA-Public Use
  Company Number: FR-MEDAC-2024-AER-01086

PATIENT
  Age: 53 Year
  Sex: Male

DRUGS (4)
  1. PEMETREXED [Suspect]
     Active Substance: PEMETREXED
     Indication: Lung adenocarcinoma stage IV
     Dosage: 500 MG/M2 (FIRST CYCLE OF MAINTENANCE CHEMOTHERAPY)
     Route: 065
  2. PEMETREXED [Suspect]
     Active Substance: PEMETREXED
     Dosage: 4 CYCLES OF CHEMOTHERAPY COMBINING CIS-PLATINUM AND PEMETREXED
     Route: 065
  3. CISPLATIN [Concomitant]
     Active Substance: CISPLATIN
     Indication: Lung adenocarcinoma stage IV
     Dosage: 4 CYCLES OF CHEMOTHERAPY COMBINING CIS-PLATINUM AND PEMETREXED
     Route: 065
  4. FILGRASTIM [Concomitant]
     Active Substance: FILGRASTIM
     Indication: Pancytopenia
     Dosage: 5 UG/KG
     Route: 058

REACTIONS (3)
  - Visceral leishmaniasis [Recovered/Resolved]
  - Pancytopenia [Unknown]
  - Drug ineffective [Unknown]
